FAERS Safety Report 21407700 (Version 1)
Quarter: 2022Q4

REPORT INFORMATION
  Report Type: Report from Study
  Country: BR (occurrence: BR)
  Receive Date: 20221004
  Receipt Date: 20221004
  Transmission Date: 20230112
  Serious: Yes (Other)
  Sender: FDA-Public Use
  Company Number: BR-NOVARTISPH-NVSC2022BR082642

PATIENT
  Age: 30 Year
  Sex: Female
  Weight: 83 kg

DRUGS (2)
  1. NILOTINIB [Suspect]
     Active Substance: NILOTINIB
     Indication: Chronic myeloid leukaemia
     Dosage: 4 DOSAGE FORM, BID (TABLET) (2 MONTHS AGO)
     Route: 048
     Dates: start: 2020, end: 2020
  2. NILOTINIB [Suspect]
     Active Substance: NILOTINIB
     Dosage: 4 DOSAGE FORM, BID (TABLET) (2 MONTHS AGO)
     Route: 048

REACTIONS (3)
  - Abortion spontaneous [Recovered/Resolved]
  - Headache [Recovered/Resolved]
  - Maternal exposure during pregnancy [Unknown]

NARRATIVE: CASE EVENT DATE: 20210801
